FAERS Safety Report 9101004 (Version 1)
Quarter: 2013Q1

REPORT INFORMATION
  Report Type: Report from Study
  Country: BE (occurrence: BE)
  Receive Date: 20130215
  Receipt Date: 20130215
  Transmission Date: 20140127
  Serious: Yes (Hospitalization)
  Sender: FDA-Public Use
  Company Number: BE-JNJFOC-20110403368

PATIENT
  Age: 77 Year
  Sex: Male
  Weight: 100 kg

DRUGS (7)
  1. ABIRATERONE ACETATE [Suspect]
     Route: 048
  2. ABIRATERONE ACETATE [Suspect]
     Indication: PROSTATE CANCER METASTATIC
     Route: 048
     Dates: start: 20110128, end: 20110407
  3. AMLOR [Concomitant]
     Route: 065
  4. LAXOBERON [Concomitant]
     Route: 065
  5. AUGMENTIN [Concomitant]
     Route: 065
  6. SIMVASTATIN [Concomitant]
     Route: 065
  7. PREDNISONE [Concomitant]
     Indication: PROSTATE CANCER METASTATIC
     Route: 065
     Dates: start: 20110128

REACTIONS (3)
  - Anaphylactic reaction [Recovered/Resolved]
  - Drug hypersensitivity [Recovered/Resolved]
  - Oedema mouth [Recovered/Resolved]
